FAERS Safety Report 17269676 (Version 1)
Quarter: 2020Q1

REPORT INFORMATION
  Report Type: Spontaneous
  Country: JP (occurrence: JP)
  Receive Date: 20200114
  Receipt Date: 20200114
  Transmission Date: 20200409
  Serious: Yes (Other)
  Sender: FDA-Public Use
  Company Number: JP-SHIRE-JP202000467AA

PATIENT
  Age: 20 Year
  Sex: Male

DRUGS (1)
  1. ADVATE [Suspect]
     Active Substance: ANTIHEMOPHILIC FACTOR, HUMAN RECOMBINANT
     Indication: FACTOR VIII DEFICIENCY
     Dosage: UNK
     Route: 065

REACTIONS (4)
  - Visual acuity reduced [Recovering/Resolving]
  - Carotid artery aneurysm [Recovered/Resolved]
  - VIth nerve paralysis [Not Recovered/Not Resolved]
  - Diplopia [Recovering/Resolving]
